FAERS Safety Report 7125425-5 (Version None)
Quarter: 2010Q4

REPORT INFORMATION
  Report Type: 
  Country: None (occurrence: None)
  Receive Date: 20101129
  Receipt Date: 20100825
  Transmission Date: 20110411
  Serious: Yes (Hospitalization, Other)
  Sender: FDA-Public Use
  Company Number: PHHO2010US13068

PATIENT
  Age: 46 Year
  Sex: Male

DRUGS (2)
  1. MYCOPHENOLIC ACID [Suspect]
     Indication: RENAL TRANSPLANT
  2. TACROLIMUS COMP-TAC+ [Suspect]
     Indication: RENAL TRANSPLANT

REACTIONS (14)
  - ASTHENIA [None]
  - CELLULITIS [None]
  - DEBRIDEMENT [None]
  - DIABETIC FOOT [None]
  - DYSPNOEA [None]
  - ERYTHEMA [None]
  - GANGRENE [None]
  - HEART RATE INCREASED [None]
  - HYPERHIDROSIS [None]
  - METATARSAL EXCISION [None]
  - OSTEOMYELITIS [None]
  - PAIN IN EXTREMITY [None]
  - PERIPHERAL SENSORY NEUROPATHY [None]
  - TOE AMPUTATION [None]
